FAERS Safety Report 9867260 (Version 2)
Quarter: 2014Q1

REPORT INFORMATION
  Report Type: Report from Study
  Country: DE (occurrence: DE)
  Receive Date: 20140204
  Receipt Date: 20140204
  Transmission Date: 20141002
  Serious: Yes (Hospitalization)
  Sender: FDA-Public Use
  Company Number: DE-BRISTOL-MYERS SQUIBB COMPANY-19923978

PATIENT
  Age: 71 Year
  Sex: Female
  Weight: 54 kg

DRUGS (30)
  1. ABATACEPT [Suspect]
     Dosage: 09FEB12 500MG?3JAN13
     Dates: start: 201201, end: 20130104
  2. METHOTREXATE [Suspect]
     Dosage: 09FEB12 7.5?PARENTERAL?INTUPD:13JAN13?RESTARTED:23MAY13
     Route: 048
     Dates: start: 20111128
  3. SULFASALAZINE [Suspect]
     Dosage: 28NOV11 3000
     Dates: start: 201107
  4. SPIRIVA [Concomitant]
     Dates: start: 200808
  5. BERODUAL [Concomitant]
     Dates: start: 200808
  6. SYMBICORT [Concomitant]
     Dates: start: 200808
  7. VALORON [Concomitant]
     Dates: start: 201012
  8. RISEDRONIC ACID [Concomitant]
     Dates: start: 201103
  9. CALCIUM [Concomitant]
     Dates: start: 201010
  10. PREDNISOLONE [Concomitant]
     Dates: start: 200808
  11. PANTOZOL [Concomitant]
     Dates: start: 201010
  12. VOMEX A [Concomitant]
     Dates: start: 201109, end: 201111
  13. PROPIVERINE HCL [Concomitant]
     Dates: start: 200808
  14. EUPHYLONG [Concomitant]
     Dates: start: 201109
  15. VERAHEXAL [Concomitant]
     Dates: start: 200808
  16. CODEINE [Concomitant]
     Dates: start: 201109
  17. ACC [Concomitant]
     Dates: start: 201109
  18. DELIX [Concomitant]
     Dates: start: 201109
  19. SAB SIMPLEX [Concomitant]
     Dates: start: 201109
  20. KALIUM RETARD [Concomitant]
     Dates: start: 201109
  21. COLECALCIFEROL [Concomitant]
     Dates: start: 201106
  22. FLUVASTATIN [Concomitant]
     Dates: start: 201111
  23. FLUVASTATIN [Concomitant]
     Dates: start: 201111
  24. NOVOMIX [Concomitant]
     Dates: start: 201012
  25. VERAPAMIL [Concomitant]
     Dates: start: 200808
  26. RAMIPRIL [Concomitant]
     Dates: start: 201111
  27. FOLIC ACID [Concomitant]
     Dates: start: 201111
  28. DIFLUCAN [Concomitant]
     Dates: start: 201212
  29. NOVOMIX [Concomitant]
     Dates: start: 201012
  30. IRON SULFATE [Concomitant]
     Dates: start: 201301

REACTIONS (5)
  - Oesophageal candidiasis [Recovered/Resolved]
  - Foreign body aspiration [Recovered/Resolved]
  - Bronchopneumonia [Recovered/Resolved]
  - Pneumonia [Recovered/Resolved]
  - Anaemia [Unknown]
